FAERS Safety Report 21499803 (Version 3)
Quarter: 2023Q1

REPORT INFORMATION
  Report Type: Spontaneous
  Country: US (occurrence: US)
  Receive Date: 20221024
  Receipt Date: 20230320
  Transmission Date: 20230417
  Serious: No
  Sender: FDA-Public Use
  Company Number: US-PFIZER INC-PV202200088290

PATIENT
  Age: 81 Year
  Sex: Female

DRUGS (1)
  1. IBRANCE [Suspect]
     Active Substance: PALBOCICLIB
     Dosage: UNK

REACTIONS (16)
  - Neoplasm progression [Unknown]
  - Arthropathy [Unknown]
  - Renal cyst [Unknown]
  - Hypotension [Unknown]
  - Dyspnoea [Unknown]
  - Dyspepsia [Unknown]
  - Alopecia [Unknown]
  - Malaise [Unknown]
  - Pain [Unknown]
  - Muscular weakness [Unknown]
  - Gait disturbance [Unknown]
  - Insomnia [Unknown]
  - Eye discharge [Unknown]
  - Rhinorrhoea [Unknown]
  - Hypersensitivity [Unknown]
  - Depression [Unknown]
